FAERS Safety Report 5515367-0 (Version None)
Quarter: 2007Q4

REPORT INFORMATION
  Report Type: 
  Country: None (occurrence: None)
  Receive Date: 20071109
  Receipt Date: 20071025
  Transmission Date: 20080405
  Serious: Yes (Life-Threatening, Hospitalization)
  Sender: FDA-Public Use
  Company Number: US021429

PATIENT
  Sex: Female
  Weight: 64.4 kg

DRUGS (10)
  1. TRISENOX [Suspect]
     Indication: MULTIPLE MYELOMA
     Dosage: 0.25 MG/KG UNK INTRAVENOUS
     Route: 042
     Dates: start: 20070724, end: 20070730
  2. HYDROMORPHONE HCL [Concomitant]
  3. LOPERAMIDE HCL [Concomitant]
  4. HEPARIN [Concomitant]
  5. SODIUM CHLORIDE [Concomitant]
  6. LANOLIN [Concomitant]
  7. LORAZEPAM [Concomitant]
  8. MORPHINE [Concomitant]
  9. OMEPRAZOLE [Concomitant]
  10. DIPHENHYDRAMINE HCL [Concomitant]

REACTIONS (20)
  - BACTERAEMIA [None]
  - BLOOD MAGNESIUM INCREASED [None]
  - CORONARY ARTERY DISEASE [None]
  - ENTEROCOCCAL INFECTION [None]
  - FEBRILE NEUTROPENIA [None]
  - HAEMATOCRIT DECREASED [None]
  - HAEMOGLOBIN DECREASED [None]
  - HEART RATE INCREASED [None]
  - HYPOTENSION [None]
  - LOSS OF CONSCIOUSNESS [None]
  - LUNG CONSOLIDATION [None]
  - MALIGNANT HYPERTENSION [None]
  - MUCOSAL INFLAMMATION [None]
  - PNEUMONIA [None]
  - PULSE ABNORMAL [None]
  - RESPIRATORY ARREST [None]
  - STEM CELL TRANSPLANT [None]
  - STENOTROPHOMONAS INFECTION [None]
  - TORSADE DE POINTES [None]
  - VENTRICULAR TACHYCARDIA [None]
